FAERS Safety Report 7450342-0 (Version None)
Quarter: 2011Q2

REPORT INFORMATION
  Report Type: 
  Country: None (occurrence: None)
  Receive Date: 20110429
  Receipt Date: 20110429
  Transmission Date: 20111010
  Serious: Yes (Hospitalization)
  Sender: FDA-Public Use
  Company Number: None

PATIENT
  Age: 82 Year
  Sex: Male
  Weight: 81.6475 kg

DRUGS (2)
  1. WARFARIN SODIUM [Suspect]
     Indication: ATRIAL FIBRILLATION
     Dosage: 3MG DALY PO
     Route: 048
     Dates: start: 20110314, end: 20110426
  2. BICALUTAMIDE [Suspect]
     Indication: PROSTATE CANCER
     Dosage: 50MG DAILY PO
     Route: 048
     Dates: start: 20110314, end: 20110426

REACTIONS (1)
  - UPPER GASTROINTESTINAL HAEMORRHAGE [None]
